FAERS Safety Report 4961096-1 (Version None)
Quarter: 2006Q1

REPORT INFORMATION
  Report Type: 
  Country: None (occurrence: None)
  Receive Date: 20060328
  Receipt Date: 20060313
  Transmission Date: 20060701
  Serious: Yes (Hospitalization, Disabling)
  Sender: FDA-Public Use
  Company Number: 401324

PATIENT
  Age: 18 Year
  Sex: Male
  Weight: 86.2 kg

DRUGS (1)
  1. ACCUTANE [Suspect]
     Indication: ACNE
     Dosage: 40 MG 2 PER 1 DAY ORAL
     Route: 048
     Dates: start: 19990615, end: 20010615

REACTIONS (57)
  - ABDOMINAL PAIN [None]
  - ALANINE AMINOTRANSFERASE INCREASED [None]
  - ALOPECIA [None]
  - ANAEMIA [None]
  - ANXIETY [None]
  - ARTHRALGIA [None]
  - ARTHROPATHY [None]
  - ASPARTATE AMINOTRANSFERASE INCREASED [None]
  - BLOOD 1,25-DIHYDROXYCHOLECALCIFEROL DECREASED [None]
  - BLOOD ALBUMIN DECREASED [None]
  - BLOOD CALCIUM DECREASED [None]
  - BLOOD ERYTHROPOIETIN INCREASED [None]
  - BLOOD IRON DECREASED [None]
  - BLOOD SODIUM INCREASED [None]
  - BUNDLE BRANCH BLOCK RIGHT [None]
  - COLITIS ULCERATIVE [None]
  - DEPRESSION [None]
  - DIARRHOEA [None]
  - DIARRHOEA HAEMORRHAGIC [None]
  - DIZZINESS [None]
  - EOSINOPHIL COUNT INCREASED [None]
  - FLUSHING [None]
  - GASTROENTERITIS [None]
  - GASTROINTESTINAL INFECTION [None]
  - HAEMATOCHEZIA [None]
  - HAEMORRHAGE [None]
  - HEADACHE [None]
  - HYPOCHROMASIA [None]
  - INFLAMMATORY BOWEL DISEASE [None]
  - INGROWING NAIL [None]
  - INTESTINAL HAEMORRHAGE [None]
  - IRON BINDING CAPACITY TOTAL DECREASED [None]
  - IRRITABLE BOWEL SYNDROME [None]
  - ISCHAEMIA [None]
  - LIGAMENT INJURY [None]
  - LYMPHOCYTE PERCENTAGE INCREASED [None]
  - MEAN CELL HAEMOGLOBIN INCREASED [None]
  - MEAN CELL VOLUME INCREASED [None]
  - MICROCYTOSIS [None]
  - MULTI-ORGAN DISORDER [None]
  - MUSCULOSKELETAL CHEST PAIN [None]
  - NIGHT SWEATS [None]
  - OCCULT BLOOD POSITIVE [None]
  - OEDEMA [None]
  - PARONYCHIA [None]
  - PLATELET COUNT INCREASED [None]
  - PROTEIN TOTAL DECREASED [None]
  - RASH [None]
  - RECTAL HAEMORRHAGE [None]
  - RED BLOOD CELL COUNT DECREASED [None]
  - RED BLOOD CELL SEDIMENTATION RATE INCREASED [None]
  - RED CELL DISTRIBUTION WIDTH INCREASED [None]
  - SERUM FERRITIN DECREASED [None]
  - SOCIAL PHOBIA [None]
  - SWELLING [None]
  - TRANSFERRIN SATURATION DECREASED [None]
  - WEIGHT DECREASED [None]
